FAERS Safety Report 5519331-7 (Version None)
Quarter: 2007Q4

REPORT INFORMATION
  Report Type: 
  Country: None (occurrence: None)
  Receive Date: 20071114
  Receipt Date: 20071102
  Transmission Date: 20080405
  Serious: Yes (Life-Threatening)
  Sender: FDA-Public Use
  Company Number: 2007AL004738

PATIENT
  Age: 43 Year
  Sex: Female

DRUGS (2)
  1. CITALOPRAM HYDROBROMIDE [Suspect]
     Dosage: 10 MG;
  2. CIPRALEX [Concomitant]

REACTIONS (10)
  - ANGER [None]
  - ANXIETY [None]
  - CONVULSION [None]
  - HEART RATE DECREASED [None]
  - INAPPROPRIATE SCHEDULE OF DRUG ADMINISTRATION [None]
  - MYOCARDIAL INFARCTION [None]
  - NERVOUS SYSTEM DISORDER [None]
  - OBSESSIVE-COMPULSIVE DISORDER [None]
  - PALPITATIONS [None]
  - WITHDRAWAL SYNDROME [None]
